FAERS Safety Report 15101529 (Version 2)
Quarter: 2019Q2

REPORT INFORMATION
  Report Type: Spontaneous
  Country: US (occurrence: US)
  Receive Date: 20180703
  Receipt Date: 20190416
  Transmission Date: 20190711
  Serious: No
  Sender: FDA-Public Use
  Company Number: US-ASTRAZENECA-2018SE80934

PATIENT
  Age: 21097 Day
  Sex: Female
  Weight: 89.8 kg

DRUGS (3)
  1. BYETTA [Suspect]
     Active Substance: EXENATIDE
     Indication: TYPE 2 DIABETES MELLITUS
     Dosage: 250 MCG / 1.2 ML, 5 MG AT NIGHT
     Route: 058
  2. THYROID MEDICATION [Concomitant]
     Active Substance: UNSPECIFIED INGREDIENT
     Indication: THYROID DISORDER
  3. BYETTA [Suspect]
     Active Substance: EXENATIDE
     Indication: BLOOD GLUCOSE ABNORMAL
     Dosage: 250 MCG / 1.2 ML, 5 MG AT NIGHT
     Route: 058

REACTIONS (4)
  - Circumstance or information capable of leading to medication error [Recovered/Resolved]
  - Injection site discolouration [Not Recovered/Not Resolved]
  - Blood glucose decreased [Unknown]
  - Off label use [Unknown]

NARRATIVE: CASE EVENT DATE: 20180617
